FAERS Safety Report 12661419 (Version 3)
Quarter: 2016Q4

REPORT INFORMATION
  Report Type: Spontaneous
  Country: US (occurrence: US)
  Receive Date: 20160817
  Receipt Date: 20161106
  Transmission Date: 20170207
  Serious: No
  Sender: FDA-Public Use
  Company Number: US-RELYPSA-RLY2016000974

PATIENT
  Sex: Female

DRUGS (19)
  1. VELTASSA [Suspect]
     Active Substance: PATIROMER
     Dosage: 16.8 G, QD
     Route: 048
     Dates: start: 2016
  2. CYCLOBENZAPRINE [Concomitant]
     Active Substance: CYCLOBENZAPRINE
  3. LEVEMIR [Concomitant]
     Active Substance: INSULIN DETEMIR
  4. ASPIRIN 81 [Concomitant]
     Active Substance: ASPIRIN
  5. HYDRALAZINE HCL [Concomitant]
     Active Substance: HYDRALAZINE HYDROCHLORIDE
  6. CRANBERRY                          /01512301/ [Concomitant]
     Active Substance: CRANBERRY
  7. BENADRYL ALLERGY [Concomitant]
     Active Substance: DIPHENHYDRAMINE HYDROCHLORIDE
  8. VELTASSA [Suspect]
     Active Substance: PATIROMER
     Indication: HYPERKALAEMIA
     Dosage: 8.4 G, QD
     Route: 048
     Dates: start: 20160524, end: 2016
  9. PIOGLITAZONE HCL [Concomitant]
     Active Substance: PIOGLITAZONE
  10. RANITIDINE HCL [Concomitant]
     Active Substance: RANITIDINE HYDROCHLORIDE
  11. MAGNESIUM ASPARTATE [Concomitant]
     Active Substance: MAGNESIUM ASPARTATE
  12. LASIX [Concomitant]
     Active Substance: FUROSEMIDE
  13. AMLODIPINE BENAZEPRIL [Concomitant]
     Active Substance: AMLODIPINE BESYLATE\BENAZEPRIL HYDROCHLORIDE
  14. ARMOUR THYROID [Concomitant]
     Active Substance: THYROID, PORCINE
  15. STOOL SOFTENER (DOCUSATE CALCIUM) [Concomitant]
     Active Substance: DOCUSATE CALCIUM
  16. HUMALOG [Concomitant]
     Active Substance: INSULIN LISPRO
  17. AMIODARONE HCL [Concomitant]
     Active Substance: AMIODARONE HYDROCHLORIDE
  18. MELATONIN [Concomitant]
     Active Substance: MELATONIN
  19. FIBER LAXATIVE [Concomitant]
     Active Substance: CALCIUM POLYCARBOPHIL

REACTIONS (1)
  - Constipation [Not Recovered/Not Resolved]
